FAERS Safety Report 6416673-8 (Version None)
Quarter: 2009Q4

REPORT INFORMATION
  Report Type: 
  Country: None (occurrence: None)
  Receive Date: 20091027
  Receipt Date: 20091016
  Transmission Date: 20100525
  Serious: Yes (Hospitalization)
  Sender: FDA-Public Use
  Company Number: US-AMGEN-US369706

PATIENT
  Sex: Female
  Weight: 3.46 kg

DRUGS (23)
  1. ENBREL [Suspect]
     Route: 064
     Dates: start: 20071210, end: 20080821
  2. VITAMIN TAB [Concomitant]
     Route: 064
     Dates: start: 20071210, end: 20080822
  3. FOLIC ACID [Concomitant]
     Route: 064
     Dates: start: 20071210, end: 20080822
  4. VITAMIN B COMPLEX CAP [Concomitant]
     Route: 064
     Dates: start: 20071210, end: 20080822
  5. CALCIUM [Concomitant]
     Route: 064
     Dates: start: 20071210, end: 20080822
  6. ASCORBIC ACID [Concomitant]
     Route: 064
     Dates: start: 20071210, end: 20080822
  7. FISH OIL [Concomitant]
     Route: 064
     Dates: start: 20071210, end: 20080822
  8. IRON [Concomitant]
     Route: 064
     Dates: start: 20080419, end: 20080822
  9. LOVENOX [Concomitant]
     Route: 064
     Dates: start: 20080106, end: 20080822
  10. THYROID TAB [Concomitant]
     Route: 064
     Dates: start: 20071210, end: 20080822
  11. ADVAIR DISKUS 100/50 [Concomitant]
     Route: 064
     Dates: start: 20071210, end: 20080822
  12. FLONASE [Concomitant]
     Route: 064
     Dates: start: 20071210, end: 20080822
  13. PEPCID [Concomitant]
     Route: 064
     Dates: start: 20071210, end: 20080822
  14. ALBUTEROL [Concomitant]
     Route: 064
     Dates: start: 20071210, end: 20080822
  15. PROGESTERONE [Concomitant]
     Route: 064
     Dates: start: 20080106, end: 20080401
  16. PROGESTERONE [Concomitant]
     Route: 064
     Dates: start: 20080402, end: 20080805
  17. ACETAMINOPHEN [Concomitant]
     Route: 064
     Dates: start: 20071210, end: 20080822
  18. CLARITIN [Concomitant]
     Route: 064
     Dates: start: 20071210, end: 20080822
  19. ASPIRIN [Concomitant]
     Route: 064
     Dates: start: 20071210, end: 20080822
  20. TUMS [Concomitant]
     Route: 064
     Dates: start: 20071210, end: 20080822
  21. MEDROL [Concomitant]
     Route: 064
     Dates: start: 20080808, end: 20080808
  22. DILAUDID [Concomitant]
     Route: 064
     Dates: start: 20080808, end: 20080808
  23. BENADRYL [Concomitant]
     Route: 064
     Dates: start: 20080201, end: 20080731

REACTIONS (2)
  - PNEUMONIA [None]
  - RESPIRATORY SYNCYTIAL VIRUS INFECTION [None]
